FAERS Safety Report 12649192 (Version 2)
Quarter: 2016Q3

REPORT INFORMATION
  Report Type: Spontaneous
  Country: US (occurrence: US)
  Receive Date: 20160812
  Receipt Date: 20160826
  Transmission Date: 20161109
  Serious: Yes (Hospitalization)
  Sender: FDA-Public Use
  Company Number: US-BAUSCH-BL-2016-018875

PATIENT
  Sex: Female
  Weight: 70.37 kg

DRUGS (8)
  1. MECLIZINE [Concomitant]
     Active Substance: MECLIZINE HYDROCHLORIDE
     Indication: DIZZINESS
  2. ABILIFY [Concomitant]
     Active Substance: ARIPIPRAZOLE
     Indication: PRODUCT USED FOR UNKNOWN INDICATION
  3. CYMBALTA [Concomitant]
     Active Substance: DULOXETINE HYDROCHLORIDE
     Indication: PRODUCT USED FOR UNKNOWN INDICATION
  4. XENAZINE [Suspect]
     Active Substance: TETRABENAZINE
     Indication: HUNTINGTON^S DISEASE
     Route: 048
     Dates: start: 201506
  5. XENAZINE [Suspect]
     Active Substance: TETRABENAZINE
     Route: 048
     Dates: start: 201607
  6. XENAZINE [Suspect]
     Active Substance: TETRABENAZINE
     Dosage: 1 TABLET BY MOUTH IN THE MORNING AND ONE-HALF TABLET IN THE EVENING
     Route: 048
  7. XENAZINE [Suspect]
     Active Substance: TETRABENAZINE
     Dosage: TITRATED DOSE
     Route: 048
  8. TETRABENAZINE. [Suspect]
     Active Substance: TETRABENAZINE
     Indication: HUNTINGTON^S DISEASE
     Dates: start: 201606

REACTIONS (2)
  - Product substitution issue [Unknown]
  - Hospitalisation [Recovered/Resolved]
